FAERS Safety Report 15544008 (Version 2)
Quarter: 2018Q4

REPORT INFORMATION
  Report Type: Spontaneous
  Country: US (occurrence: US)
  Receive Date: 20181023
  Receipt Date: 20181128
  Transmission Date: 20190205
  Serious: No
  Sender: FDA-Public Use
  Company Number: US-ASTRAZENECA-2018SF24552

PATIENT
  Sex: Female

DRUGS (1)
  1. SYMBICORT [Suspect]
     Active Substance: BUDESONIDE\FORMOTEROL FUMARATE DIHYDRATE
     Dosage: 160/4.5MCG, UNKNOWN UNKNOWN
     Route: 055
     Dates: start: 20180922

REACTIONS (4)
  - Device malfunction [Unknown]
  - Product used for unknown indication [Unknown]
  - Chronic obstructive pulmonary disease [Unknown]
  - Intentional device misuse [Unknown]
